FAERS Safety Report 10355463 (Version 2)
Quarter: 2015Q1

REPORT INFORMATION
  Report Type: Report from Study
  Country: US (occurrence: US)
  Receive Date: 20140731
  Receipt Date: 20150203
  Transmission Date: 20150720
  Serious: Yes (Hospitalization)
  Sender: FDA-Public Use
  Company Number: US-EXELIXIS-CABO-14004560

PATIENT
  Age: 40 Year
  Sex: Male

DRUGS (2)
  1. CABOZANTINIB [Suspect]
     Active Substance: CABOZANTINIB
     Indication: THYROID CANCER
     Dosage: 140 MG, QD
     Route: 048
     Dates: start: 20140621, end: 20141006
  2. CABOZANTINIB [Suspect]
     Active Substance: CABOZANTINIB
     Dosage: 100 MG, QD
     Route: 048
     Dates: start: 20141130

REACTIONS (7)
  - Fatigue [Unknown]
  - Confusional state [Unknown]
  - Pain in extremity [Unknown]
  - Abasia [Unknown]
  - Rash [Unknown]
  - Mucosal inflammation [Unknown]
  - Skin fissures [Unknown]

NARRATIVE: CASE EVENT DATE: 20140724
